FAERS Safety Report 4790810-3 (Version None)
Quarter: 2005Q3

REPORT INFORMATION
  Report Type: 
  Country: None (occurrence: None)
  Receive Date: 20050914
  Receipt Date: 20040923
  Transmission Date: 20060218
  Serious: Yes (Death)
  Sender: FDA-Public Use
  Company Number: 163-20785-04090620

PATIENT
  Age: 71 Year
  Sex: Female

DRUGS (3)
  1. THALOMID [Suspect]
     Indication: BREAST CANCER FEMALE
     Dosage: 50 MG, DAILY, ORAL
     Route: 048
     Dates: start: 20040903, end: 20040910
  2. LOPRESSOR [Concomitant]
  3. MORPHINE SULFATE [Concomitant]

REACTIONS (6)
  - DEATH [None]
  - DISEASE PROGRESSION [None]
  - FATIGUE [None]
  - FEELING ABNORMAL [None]
  - THINKING ABNORMAL [None]
  - TREMOR [None]
